FAERS Safety Report 22536955 (Version 1)
Quarter: 2023Q2

REPORT INFORMATION
  Report Type: Report from Study
  Country: NL (occurrence: NL)
  Receive Date: 20230608
  Receipt Date: 20230608
  Transmission Date: 20230722
  Serious: Yes (Death, Other)
  Sender: FDA-Public Use
  Company Number: NL-ELI_LILLY_AND_COMPANY-NL202306004238

PATIENT
  Age: 70 Year

DRUGS (2)
  1. GEMCITABINE HYDROCHLORIDE [Suspect]
     Active Substance: GEMCITABINE HYDROCHLORIDE
     Indication: Cholangiocarcinoma
     Dosage: 100 MG/M2, CYCLICAL
     Route: 065
  2. CISPLATIN [Suspect]
     Active Substance: CISPLATIN
     Indication: Cholangiocarcinoma
     Dosage: 25 MG/M2, CYCLIC (ON DAY 1 AND 8, EVERY 3 WEEKS, 6 CYCLES)
     Route: 065

REACTIONS (4)
  - Death [Fatal]
  - Neuropathy peripheral [Unknown]
  - Renal impairment [Unknown]
  - Off label use [Unknown]
